FAERS Safety Report 17168608 (Version 1)
Quarter: 2019Q4

REPORT INFORMATION
  Report Type: Spontaneous
  Country: US (occurrence: US)
  Receive Date: 20191218
  Receipt Date: 20191218
  Transmission Date: 20200122
  Serious: No
  Sender: FDA-Public Use
  Company Number: US-STRIDES ARCOLAB LIMITED-2019SP010977

PATIENT
  Age: 48 Year
  Sex: Female

DRUGS (1)
  1. IBUPROFEN. [Suspect]
     Active Substance: IBUPROFEN
     Indication: PRODUCT USED FOR UNKNOWN INDICATION
     Dosage: 400 MG 2 HOURS PRIOR TO PHOTOTHERAPY WHICH WAS ADMINISTERED 2?3 TIMES PER WEEK
     Route: 065

REACTIONS (1)
  - Off label use [Unknown]
